FAERS Safety Report 25716234 (Version 1)
Quarter: 2025Q3

REPORT INFORMATION
  Report Type: Spontaneous
  Country: US (occurrence: US)
  Receive Date: 20250822
  Receipt Date: 20250822
  Transmission Date: 20251021
  Serious: Yes (Other)
  Sender: NOVO NORDISK
  Company Number: US-NOVOPROD-1500960

PATIENT
  Age: 53 Year

DRUGS (1)
  1. OZEMPIC [Suspect]
     Active Substance: SEMAGLUTIDE
     Indication: Weight control
     Dates: start: 202210, end: 202401

REACTIONS (4)
  - Intestinal obstruction [Not Recovered/Not Resolved]
  - Ileus [Not Recovered/Not Resolved]
  - Emotional distress [Not Recovered/Not Resolved]
  - Off label use [Unknown]

NARRATIVE: CASE EVENT DATE: 20221001
